FAERS Safety Report 12957630 (Version 1)
Quarter: 2016Q4

REPORT INFORMATION
  Report Type: Spontaneous
  Country: US (occurrence: US)
  Receive Date: 20161119
  Receipt Date: 20161119
  Transmission Date: 20170207
  Serious: Yes (Life-Threatening, Other)
  Sender: FDA-Public Use
  Company Number: US-ASTRAZENECA-2016SF21443

PATIENT
  Sex: Male
  Weight: 99.8 kg

DRUGS (5)
  1. SEROQUEL XR [Suspect]
     Active Substance: QUETIAPINE FUMARATE
     Indication: BIPOLAR DISORDER
     Dosage: AT NIGHT
     Route: 048
     Dates: start: 2016, end: 2016
  2. AMBIEN [Concomitant]
     Active Substance: ZOLPIDEM TARTRATE
     Indication: SLEEP DISORDER
     Dosage: AT NIGHT
     Route: 048
     Dates: start: 2016
  3. AMBIEN [Concomitant]
     Active Substance: ZOLPIDEM TARTRATE
     Indication: GENERAL SYMPTOM
     Dosage: AT NIGHT
     Route: 048
     Dates: start: 2016
  4. SEROQUEL XR [Suspect]
     Active Substance: QUETIAPINE FUMARATE
     Indication: TACHYPHRENIA
     Dosage: AT NIGHT
     Route: 048
     Dates: start: 2016, end: 2016
  5. SEROQUEL XR [Suspect]
     Active Substance: QUETIAPINE FUMARATE
     Indication: SUICIDAL IDEATION
     Dosage: AT NIGHT
     Route: 048
     Dates: start: 2016, end: 2016

REACTIONS (5)
  - Skin ulcer [Unknown]
  - Weight increased [Unknown]
  - Suicide attempt [Recovering/Resolving]
  - Gastric dilatation [Unknown]
  - Immunodeficiency [Unknown]
